FAERS Safety Report 20144345 (Version 1)
Quarter: 2021Q4

REPORT INFORMATION
  Report Type: Spontaneous
  Country: US (occurrence: None)
  Receive Date: 20211202
  Receipt Date: 20211202
  Transmission Date: 20220303
  Serious: Yes (Hospitalization)
  Sender: FDA-Public Use
  Company Number: None

PATIENT
  Age: 68 Year
  Sex: Female

DRUGS (1)
  1. AUBAGIO [Suspect]
     Active Substance: TERIFLUNOMIDE
     Indication: Multiple sclerosis
     Dosage: FREQUENCY : DAILY;?
     Route: 048
     Dates: start: 202102

REACTIONS (7)
  - Loss of consciousness [None]
  - Multiple sclerosis relapse [None]
  - Localised infection [None]
  - Therapy interrupted [None]
  - Cystitis [None]
  - Paralysis [None]
  - Speech disorder [None]

NARRATIVE: CASE EVENT DATE: 20210626
